FAERS Safety Report 7029172-X (Version None)
Quarter: 2010Q4

REPORT INFORMATION
  Report Type: 
  Country: None (occurrence: None)
  Receive Date: 20101005
  Receipt Date: 20100928
  Transmission Date: 20110411
  Serious: Yes (Hospitalization)
  Sender: FDA-Public Use
  Company Number: JP-SANOFI-AVENTIS-2010SA007449

PATIENT
  Age: 88 Year
  Sex: Male
  Weight: 58.8 kg

DRUGS (11)
  1. CLOPIDOGREL BISULFATE [Suspect]
     Indication: ANGINA PECTORIS
     Route: 048
     Dates: start: 20090207, end: 20090207
  2. CLOPIDOGREL BISULFATE [Suspect]
     Route: 048
     Dates: start: 20090207, end: 20090207
  3. CLOPIDOGREL BISULFATE [Suspect]
     Route: 048
     Dates: start: 20090208, end: 20090429
  4. CLOPIDOGREL BISULFATE [Suspect]
     Route: 048
     Dates: start: 20090208, end: 20090429
  5. CLOPIDOGREL BISULFATE [Suspect]
     Route: 048
     Dates: start: 20090501, end: 20100204
  6. CLOPIDOGREL BISULFATE [Suspect]
     Route: 048
     Dates: start: 20090501, end: 20100204
  7. ASPIRIN [Concomitant]
     Indication: ANGINA PECTORIS
     Route: 048
     Dates: start: 20090128
  8. SIGMART [Concomitant]
     Indication: ANGINA PECTORIS
     Route: 048
     Dates: start: 20090128
  9. AZULENE SODIUM SULFONATE [Concomitant]
     Indication: CATARACT
     Route: 047
     Dates: start: 19820101
  10. KARY UNI [Concomitant]
     Indication: CATARACT
     Route: 047
     Dates: start: 19820101
  11. OPALMON [Concomitant]
     Route: 048
     Dates: start: 20100101

REACTIONS (2)
  - EMPHYSEMA [None]
  - LUNG NEOPLASM MALIGNANT [None]
